FAERS Safety Report 25037049 (Version 1)
Quarter: 2025Q1

REPORT INFORMATION
  Report Type: Spontaneous
  Country: US (occurrence: US)
  Receive Date: 20250304
  Receipt Date: 20250304
  Transmission Date: 20250408
  Serious: Yes (Other)
  Sender: ORGANON
  Company Number: US-ORGANON-O2502USA002667

PATIENT
  Sex: Female

DRUGS (2)
  1. NEXPLANON [Suspect]
     Active Substance: ETONOGESTREL
     Route: 059
     Dates: start: 2023
  2. NEXPLANON [Concomitant]
     Active Substance: ETONOGESTREL
     Route: 059

REACTIONS (6)
  - Menometrorrhagia [Not Recovered/Not Resolved]
  - Amenorrhoea [Recovered/Resolved]
  - Dysmenorrhoea [Not Recovered/Not Resolved]
  - Mood swings [Not Recovered/Not Resolved]
  - Appetite disorder [Not Recovered/Not Resolved]
  - Breast mass [Not Recovered/Not Resolved]

NARRATIVE: CASE EVENT DATE: 20230101
